FAERS Safety Report 23556209 (Version 2)
Quarter: 2024Q1

REPORT INFORMATION
  Report Type: Report from Study
  Country: US (occurrence: US)
  Receive Date: 20240223
  Receipt Date: 20240229
  Transmission Date: 20240410
  Serious: No
  Sender: FDA-Public Use
  Company Number: US-JNJFOC-20240238741

PATIENT
  Age: 35 Year
  Sex: Female
  Weight: 102.38 kg

DRUGS (8)
  1. SPRAVATO [Suspect]
     Active Substance: ESKETAMINE
     Indication: Depression
     Dosage: 56 MG, 1 DOSE
     Dates: start: 20230620, end: 20230620
  2. SPRAVATO [Suspect]
     Active Substance: ESKETAMINE
     Dosage: 84 MG, 35 DOSES
     Dates: start: 20230622, end: 20240130
  3. SPRAVATO [Suspect]
     Active Substance: ESKETAMINE
     Dosage: RECENT DOSE
     Dates: start: 20240206, end: 20240206
  4. VYVANSE [Concomitant]
     Active Substance: LISDEXAMFETAMINE DIMESYLATE
     Indication: Attention deficit hyperactivity disorder
     Route: 048
     Dates: start: 20231031
  5. DEPLIN [LEVOMEFOLIC ACID] [Concomitant]
     Indication: Major depression
     Route: 048
     Dates: start: 20231114
  6. PRISTIQ EXTENDED-RELEASE [Concomitant]
     Active Substance: DESVENLAFAXINE SUCCINATE
     Indication: Major depression
     Route: 048
     Dates: start: 20230919
  7. INGREZZA [Concomitant]
     Active Substance: VALBENAZINE
     Indication: Dyskinesia
     Route: 048
     Dates: start: 20230417
  8. TRINTELLIX [Concomitant]
     Active Substance: VORTIOXETINE HYDROBROMIDE
     Indication: Hyperhidrosis
     Route: 048
     Dates: start: 20230919

REACTIONS (1)
  - Blood pressure increased [Recovered/Resolved]

NARRATIVE: CASE EVENT DATE: 20240206
